FAERS Safety Report 22893993 (Version 2)
Quarter: 2024Q1

REPORT INFORMATION
  Report Type: Spontaneous
  Country: US (occurrence: US)
  Receive Date: 20230901
  Receipt Date: 20240229
  Transmission Date: 20240410
  Serious: No
  Sender: FDA-Public Use
  Company Number: US-HORIZON THERAPEUTICS-HZN-2023-004279

PATIENT

DRUGS (3)
  1. TEPEZZA [Suspect]
     Active Substance: TEPROTUMUMAB-TRBW
     Indication: Endocrine ophthalmopathy
     Dosage: FIRST INFUSION UNK
     Route: 042
     Dates: start: 20230420
  2. TEPEZZA [Suspect]
     Active Substance: TEPROTUMUMAB-TRBW
     Dosage: SECOND INFUSION UNK
     Route: 042
     Dates: start: 2023
  3. TEPEZZA [Suspect]
     Active Substance: TEPROTUMUMAB-TRBW
     Dosage: UNKNOWN INFUSION
     Route: 042
     Dates: start: 2023

REACTIONS (7)
  - Nausea [Unknown]
  - Headache [Unknown]
  - Dry mouth [Unknown]
  - Oral pain [Unknown]
  - Plicated tongue [Unknown]
  - Gingival pain [Unknown]
  - Ear discomfort [Unknown]

NARRATIVE: CASE EVENT DATE: 20230101
